FAERS Safety Report 17680337 (Version 1)
Quarter: 2020Q2

REPORT INFORMATION
  Report Type: Spontaneous
  Country: US (occurrence: US)
  Receive Date: 20200417
  Receipt Date: 20200417
  Transmission Date: 20200714
  Serious: Yes (Hospitalization)
  Sender: FDA-Public Use
  Company Number: None

PATIENT
  Age: 37 Year
  Sex: Female

DRUGS (10)
  1. PRENATAL [Concomitant]
     Active Substance: VITAMINS
  2. CIPRODEX [Concomitant]
     Active Substance: CIPROFLOXACIN HYDROCHLORIDE\DEXAMETHASONE
  3. BIOTIN [Concomitant]
     Active Substance: BIOTIN
  4. FOLIC ACID. [Concomitant]
     Active Substance: FOLIC ACID
  5. FLUTICASONE. [Concomitant]
     Active Substance: FLUTICASONE
  6. HUMIRA [Suspect]
     Active Substance: ADALIMUMAB
     Indication: PSORIATIC ARTHROPATHY
     Dosage: FREQUENCY: Q14DAYS
     Route: 058
     Dates: start: 20151102
  7. VITB-COMPLEX [Concomitant]
  8. LEVOFLOXACI N [Concomitant]
  9. VITC [Concomitant]
  10. WARFARIN [Concomitant]
     Active Substance: WARFARIN

REACTIONS (1)
  - Rash [None]

NARRATIVE: CASE EVENT DATE: 20200305
